FAERS Safety Report 15807335 (Version 1)
Quarter: 2019Q1

REPORT INFORMATION
  Report Type: Spontaneous
  Country: CZ (occurrence: CZ)
  Receive Date: 20190110
  Receipt Date: 20190110
  Transmission Date: 20190417
  Serious: Yes (Hospitalization)
  Sender: FDA-Public Use
  Company Number: CZ-BAUSCH-BL-2019-000777

PATIENT
  Age: 45 Year
  Sex: Male
  Weight: 80 kg

DRUGS (3)
  1. DEXAMED [Concomitant]
     Indication: SPINAL PAIN
     Dosage: ADMINISTERED TOGETHER WITH NOVALGIN 5ML IN AN INFUSION OF 250ML SALINE SOLUTION
     Route: 042
     Dates: start: 20181121, end: 20181125
  2. DICLOFENAC [Suspect]
     Active Substance: DICLOFENAC
     Indication: SPINAL PAIN
     Dosage: 1 DF, BID (1-0-1)
     Route: 048
     Dates: start: 20181112, end: 20181122
  3. ZALDIAR [Concomitant]
     Active Substance: ACETAMINOPHEN\TRAMADOL HYDROCHLORIDE
     Indication: SPINAL PAIN
     Dosage: 3 UNK UNITS  UNK, TID (2-2-2)
     Route: 048

REACTIONS (1)
  - Drug eruption [Recovering/Resolving]

NARRATIVE: CASE EVENT DATE: 20181115
